FAERS Safety Report 24283517 (Version 6)
Quarter: 2025Q3

REPORT INFORMATION
  Report Type: Report from Study
  Country: US (occurrence: US)
  Receive Date: 20240904
  Receipt Date: 20250715
  Transmission Date: 20251021
  Serious: Yes (Other)
  Sender: SUNOVION
  Company Number: US-SUMITOMO PHARMA SWITZERLAND GMBH-2024SPA001105

PATIENT

DRUGS (1)
  1. ORGOVYX [Suspect]
     Active Substance: RELUGOLIX
     Indication: Prostate cancer
     Dosage: 120 MG, QD
     Route: 048
     Dates: start: 20240213

REACTIONS (7)
  - Syncope [Unknown]
  - Prostatic mass [Unknown]
  - Increased appetite [Unknown]
  - Hyperhidrosis [Unknown]
  - Hot flush [Unknown]
  - Constipation [Unknown]
  - Incorrect dose administered [Unknown]
